FAERS Safety Report 26178870 (Version 1)
Quarter: 2025Q4

REPORT INFORMATION
  Report Type: Spontaneous
  Country: EU (occurrence: None)
  Receive Date: 20251219
  Receipt Date: 20251219
  Transmission Date: 20260117
  Serious: Yes (Life-Threatening, Disabling, Other)
  Sender: UCB
  Company Number: None

PATIENT
  Age: 46 Year

DRUGS (2)
  1. VIMPAT [Suspect]
     Active Substance: LACOSAMIDE
     Indication: Epilepsy
     Dosage: UNK, 12 HRS
     Route: 061
  2. ACETAMINOPHEN [Concomitant]
     Active Substance: ACETAMINOPHEN
     Indication: Epilepsy
     Dosage: UNK 12 HRS
     Route: 061

REACTIONS (10)
  - Tinnitus [Recovering/Resolving]
  - Nausea [Recovering/Resolving]
  - Abdominal pain [Recovering/Resolving]
  - Headache [Recovering/Resolving]
  - Muscle twitching [Recovering/Resolving]
  - Muscle spasms [Recovering/Resolving]
  - Seizure [Recovering/Resolving]
  - Dizziness [Unknown]
  - Pain in jaw [Unknown]
  - Ear pain [Unknown]
